FAERS Safety Report 23701136 (Version 1)
Quarter: 2024Q2

REPORT INFORMATION
  Report Type: Spontaneous
  Country: US (occurrence: US)
  Receive Date: 20240403
  Receipt Date: 20240403
  Transmission Date: 20240716
  Serious: Yes (Life-Threatening, Hospitalization, Other)
  Sender: FDA-Public Use
  Company Number: US-QUAGEN-2024QUALIT00072

PATIENT
  Age: 47 Year
  Sex: Male

DRUGS (1)
  1. VALPROIC ACID [Suspect]
     Active Substance: VALPROIC ACID
     Indication: Product used for unknown indication
     Route: 065

REACTIONS (4)
  - Respiratory failure [Recovered/Resolved]
  - Hypovolaemic shock [Recovered/Resolved]
  - Hyperammonaemic encephalopathy [Recovered/Resolved]
  - Overdose [Unknown]
